APPROVED DRUG PRODUCT: ENTACAPONE
Active Ingredient: ENTACAPONE
Strength: 200MG
Dosage Form/Route: TABLET;ORAL
Application: A206669 | Product #001 | TE Code: AB
Applicant: SUNSHINE LAKE PHARMA CO LTD
Approved: Oct 3, 2018 | RLD: No | RS: No | Type: RX